FAERS Safety Report 9871906 (Version 2)
Quarter: 2014Q1

REPORT INFORMATION
  Report Type: Spontaneous
  Country: US (occurrence: US)
  Receive Date: 20140205
  Receipt Date: 20140205
  Transmission Date: 20141002
  Serious: Yes (Hospitalization)
  Sender: FDA-Public Use
  Company Number: US-B.I. PHARMACEUTICALS,INC./RIDGEFIELD-2013-BI-42667BP

PATIENT
  Age: 78 Year
  Sex: Male
  Weight: 95.25 kg

DRUGS (9)
  1. PRADAXA [Suspect]
     Indication: ATRIAL FIBRILLATION
     Dosage: 300 MG
     Dates: start: 20110928, end: 20111024
  2. PRADAXA [Suspect]
     Dosage: 300 MG
     Dates: start: 20120126, end: 20120320
  3. MULTIVITAMINS [Concomitant]
  4. TOPROL XL [Concomitant]
     Indication: HYPERTENSION
     Dosage: 50 MG
     Route: 048
  5. ALLOPURINOL [Concomitant]
     Indication: GOUT
     Dosage: 300 MG
     Route: 048
  6. SILODOSIN [Concomitant]
     Dosage: 8 MG
     Route: 048
  7. VICODIN [Concomitant]
  8. LOSARTAN/HYDROCHLOROTHIAZIDE [Concomitant]
     Route: 048
  9. ASPIRIN [Concomitant]

REACTIONS (4)
  - Gastrointestinal haemorrhage [Unknown]
  - Anaemia [Unknown]
  - Renal failure [Unknown]
  - Gastrooesophageal reflux disease [Unknown]
